FAERS Safety Report 4682570-1 (Version None)
Quarter: 2005Q2

REPORT INFORMATION
  Report Type: 
  Country: None (occurrence: None)
  Receive Date: 20050606
  Receipt Date: 20050516
  Transmission Date: 20051028
  Serious: Yes (Hospitalization)
  Sender: FDA-Public Use
  Company Number: JP-SANOFI-SYNTHELABO-A01200503428

PATIENT
  Age: 67 Year
  Sex: Female

DRUGS (14)
  1. MYSLEE [Suspect]
     Indication: INSOMNIA
     Dosage: 5 MG
     Route: 048
  2. PAROXETINE HCL [Suspect]
     Indication: DYSTHYMIC DISORDER
     Dosage: 10 MG
     Route: 048
  3. PAROXETINE HCL [Suspect]
     Dosage: 30 MG
     Route: 048
  4. PAROXETINE HCL [Suspect]
     Dosage: 10 MG
     Route: 048
  5. FLUNITRAZEPAM [Suspect]
     Indication: DYSTHYMIC DISORDER
     Dosage: 2 MG
     Route: 048
  6. LANSOPRAZOLE [Concomitant]
     Dosage: 15 MG
     Route: 065
  7. SENNOSIDE [Concomitant]
     Dosage: 36 MG
     Route: 065
  8. MAGNESIUM [Concomitant]
     Dosage: 1980 MG
     Route: 065
  9. POTASSIUM GLUCONATE TAB [Concomitant]
     Dosage: 1000 MG
     Route: 065
  10. LACTULOSE [Concomitant]
     Dosage: 48.15 G
     Route: 065
  11. FLAVOXATE HYDROCHLORIDE COATED TAB [Concomitant]
     Dosage: 200 MG
     Route: 065
  12. CHLORPROMAZINE [Concomitant]
     Dosage: 25 MG
     Route: 065
  13. RISPERIDONE [Concomitant]
     Dosage: 0.5 MG
     Route: 065
  14. AMLOPIDENE [Concomitant]
     Dosage: 2.5 MG
     Route: 065

REACTIONS (12)
  - AMNESIA [None]
  - ARTHRALGIA [None]
  - DELIRIUM [None]
  - DEPRESSED LEVEL OF CONSCIOUSNESS [None]
  - DISORIENTATION [None]
  - HALLUCINATION [None]
  - HEPATIC ENCEPHALOPATHY [None]
  - INSOMNIA [None]
  - PAIN [None]
  - PORIOMANIA [None]
  - RESTLESSNESS [None]
  - URINARY INCONTINENCE [None]
